FAERS Safety Report 7601692-6 (Version None)
Quarter: 2011Q3

REPORT INFORMATION
  Report Type: 
  Country: None (occurrence: None)
  Receive Date: 20110711
  Receipt Date: 20110702
  Transmission Date: 20111222
  Serious: Yes (Death, Hospitalization)
  Sender: FDA-Public Use
  Company Number: IT-BAXTER-2011BH022029

PATIENT
  Age: 56 Year
  Sex: Female

DRUGS (8)
  1. ZOFRAN [Concomitant]
     Indication: PROPHYLAXIS OF NAUSEA AND VOMITING
     Route: 040
     Dates: start: 20110413, end: 20110413
  2. METHYLPREDNISOLONE [Suspect]
     Indication: NON-HODGKIN'S LYMPHOMA
     Route: 042
     Dates: start: 20110414, end: 20110417
  3. CYCLOPHOSPHAMIDE [Suspect]
     Indication: NON-HODGKIN'S LYMPHOMA
     Route: 040
     Dates: start: 20110413, end: 20110413
  4. VINCRISTINE SULFATE [Suspect]
     Indication: NON-HODGKIN'S LYMPHOMA
     Route: 040
     Dates: start: 20110413, end: 20110413
  5. DOXORUBICIN HCL [Suspect]
     Indication: NON-HODGKIN'S LYMPHOMA
     Route: 040
     Dates: start: 20110413, end: 20110413
  6. PREDNISONE [Suspect]
     Indication: NON-HODGKIN'S LYMPHOMA
     Route: 048
     Dates: start: 20110419, end: 20110503
  7. DEXAMETHASONE [Concomitant]
     Indication: PROPHYLAXIS OF NAUSEA AND VOMITING
     Route: 040
     Dates: start: 20110413, end: 20110413
  8. ALLOPURINOL [Concomitant]
     Indication: HYPERURICAEMIA
     Route: 048
     Dates: start: 20110413, end: 20110503

REACTIONS (4)
  - SEPSIS [None]
  - PNEUMONIA [None]
  - ENDOCARDITIS [None]
  - CHOLANGITIS [None]
